FAERS Safety Report 8385041-4 (Version None)
Quarter: 2012Q2

REPORT INFORMATION
  Report Type: 
  Country: None (occurrence: None)
  Receive Date: 20120524
  Receipt Date: 20120517
  Transmission Date: 20120825
  Serious: Yes (Hospitalization)
  Sender: FDA-Public Use
  Company Number: JP-MERCK-1205USA03953

PATIENT
  Age: 78 Year
  Sex: Female

DRUGS (3)
  1. AMLODIPINE BESYLATE [Concomitant]
     Route: 065
  2. ZOLPIDEM [Concomitant]
     Route: 065
  3. JANUVIA [Suspect]
     Indication: TYPE 2 DIABETES MELLITUS
     Route: 048

REACTIONS (4)
  - FEMORAL NECK FRACTURE [None]
  - BLOOD CREATININE INCREASED [None]
  - URINARY TRACT INFECTION [None]
  - PYELONEPHRITIS [None]
